FAERS Safety Report 12366972 (Version 3)
Quarter: 2016Q2

REPORT INFORMATION
  Report Type: Spontaneous
  Country: US (occurrence: US)
  Receive Date: 20160513
  Receipt Date: 20160615
  Transmission Date: 20160815
  Serious: No
  Sender: FDA-Public Use
  Company Number: US-BAYER-2016-092371

PATIENT
  Age: 7 Year
  Sex: Female
  Weight: 31.75 kg

DRUGS (3)
  1. MIRALAX [Suspect]
     Active Substance: POLYETHYLENE GLYCOL 3350
     Dosage: 1 DF, ONCE DAILY
     Route: 048
  2. EXLAX [PHENOLPHTHALEIN] [Concomitant]
  3. BENEFIBER [Concomitant]
     Active Substance: STARCH, WHEAT

REACTIONS (2)
  - Product use issue [None]
  - Drug effect incomplete [None]
